FAERS Safety Report 26105272 (Version 1)
Quarter: 2025Q4

REPORT INFORMATION
  Report Type: Report from Study
  Country: US (occurrence: US)
  Receive Date: 20251201
  Receipt Date: 20251201
  Transmission Date: 20260118
  Serious: No
  Sender: ACADIA PHARMACEUTICALS
  Company Number: US-ACADIA PHARMACEUTICALS INC.-ACA-2025-PIM-012756

PATIENT
  Sex: Male

DRUGS (14)
  1. NUPLAZID [Suspect]
     Active Substance: PIMAVANSERIN TARTRATE
     Indication: Parkinson^s disease
     Dosage: 34 MILLIGRAM, QD
     Route: 048
     Dates: start: 20250520
  2. GARLIC [Concomitant]
     Active Substance: GARLIC
  3. MAGNESIUM [Concomitant]
     Active Substance: MAGNESIUM
  4. VITAMINS NOS [Concomitant]
     Active Substance: VITAMINS
  5. MINERALS\VITAMINS [Concomitant]
     Active Substance: MINERALS\VITAMINS
  6. HERBALS\TURMERIC [Concomitant]
     Active Substance: HERBALS\TURMERIC
  7. DOCONEXENT\ICOSAPENT [Concomitant]
     Active Substance: DOCONEXENT\ICOSAPENT
  8. ATORVASTATIN [Concomitant]
     Active Substance: ATORVASTATIN
  9. CEPHALEXIN [Concomitant]
     Active Substance: CEPHALEXIN
  10. MEMANTINE [Concomitant]
     Active Substance: MEMANTINE
  11. FINASTERIDE [Concomitant]
     Active Substance: FINASTERIDE
  12. ENTACAPONE [Concomitant]
     Active Substance: ENTACAPONE
  13. ROPINIROLE [Concomitant]
     Active Substance: ROPINIROLE
  14. CARBIDOPA\LEVODOPA [Concomitant]
     Active Substance: CARBIDOPA\LEVODOPA

REACTIONS (1)
  - Product dose omission issue [Not Recovered/Not Resolved]
